FAERS Safety Report 19065615 (Version 1)
Quarter: 2021Q1

REPORT INFORMATION
  Report Type: Spontaneous
  Country: FR (occurrence: FR)
  Receive Date: 20210327
  Receipt Date: 20210327
  Transmission Date: 20210420
  Serious: Yes (Hospitalization)
  Sender: FDA-Public Use
  Company Number: FR-ACCORD-220950

PATIENT
  Age: 72 Year
  Sex: Female
  Weight: 75 kg

DRUGS (7)
  1. IRBESARTAN. [Suspect]
     Active Substance: IRBESARTAN
     Indication: HYPERTENSION
     Route: 048
     Dates: end: 20200410
  2. ESIDREX [Concomitant]
     Active Substance: HYDROCHLOROTHIAZIDE
     Dosage: 25 MG, TABLET
  3. ATENOLOL/ATENOLOL HYDROCHLORIDE [Concomitant]
     Active Substance: ATENOLOL HYDROCHLORIDE
  4. AMLODIPINE [Suspect]
     Active Substance: AMLODIPINE BESYLATE
     Indication: HYPERTENSION
     Route: 048
     Dates: end: 20200410
  5. KARDEGIC [Concomitant]
     Active Substance: ASPIRIN DL-LYSINE
     Dosage: 75 MG POWDER FOR ORAL SOLUTION IN SACHET?DOSE
  6. LANSOPRAZOLE. [Concomitant]
     Active Substance: LANSOPRAZOLE
  7. ATORVASTATIN [Concomitant]
     Active Substance: ATORVASTATIN

REACTIONS (2)
  - Vertigo [Recovered/Resolved]
  - Hypertension [Recovered/Resolved]

NARRATIVE: CASE EVENT DATE: 20200409
